FAERS Safety Report 9924672 (Version 1)
Quarter: 2014Q1

REPORT INFORMATION
  Report Type: Spontaneous
  Country: US (occurrence: US)
  Receive Date: 20140226
  Receipt Date: 20140226
  Transmission Date: 20141002
  Serious: No
  Sender: FDA-Public Use
  Company Number: US-PFIZER INC-2014052494

PATIENT
  Age: 64 Year
  Sex: Female
  Weight: 95.24 kg

DRUGS (7)
  1. CELEBREX [Suspect]
     Indication: BACK DISORDER
     Dosage: 200 MG, DAILY
  2. LYRICA [Concomitant]
     Indication: FIBROMYALGIA
     Dosage: UNK
  3. LOTENSIN [Concomitant]
     Indication: HYPERTENSION
     Dosage: UNK
  4. AMBIEN [Concomitant]
     Dosage: UNK
  5. EVOXAC [Concomitant]
     Dosage: 30 MG, UNK
  6. DIOVAN (VALSARTAN) [Concomitant]
     Indication: HYPERTENSION
     Dosage: UNK
  7. CLARITIN [Concomitant]
     Dosage: UNK

REACTIONS (2)
  - Abdominal discomfort [Unknown]
  - Dyspepsia [Unknown]
